FAERS Safety Report 4760092-7 (Version None)
Quarter: 2005Q3

REPORT INFORMATION
  Report Type: 
  Country: None (occurrence: None)
  Receive Date: 20050902
  Receipt Date: 20050225
  Transmission Date: 20060218
  Serious: No
  Sender: FDA-Public Use
  Company Number: US-GLAXOSMITHKLINE-A0547386A

PATIENT
  Age: 67 Year
  Sex: Female

DRUGS (9)
  1. REQUIP [Suspect]
     Indication: PARKINSON'S DISEASE
     Dosage: 4.5MG FOUR TIMES PER DAY
     Route: 048
     Dates: start: 20041130
  2. SINEMET [Concomitant]
  3. XANAX [Concomitant]
  4. MULTIVITAMIN [Concomitant]
  5. CALCIUM + VIT D [Concomitant]
  6. VITAMIN E [Concomitant]
  7. ASCORBIC ACID [Concomitant]
  8. SYNTHROID [Concomitant]
  9. TUMS [Concomitant]

REACTIONS (3)
  - BURNING SENSATION [None]
  - OEDEMA PERIPHERAL [None]
  - PARAESTHESIA [None]
